FAERS Safety Report 8894060 (Version 1)
Quarter: 2012Q4

REPORT INFORMATION
  Report Type: 
  Country: CN (occurrence: CN)
  Receive Date: 20121108
  Receipt Date: 20121108
  Transmission Date: 20130627
  Serious: Yes (Other)
  Sender: FDA-Public Use
  Company Number: CN-ABBOTT-12P-035-1003848-00

PATIENT
  Age: 76 Year
  Sex: Male

DRUGS (3)
  1. DEPAKINE [Suspect]
     Indication: EPILEPSY
     Dosage: 1 dosage form; Daily
     Route: 048
     Dates: start: 20120929
  2. PIRACETAM [Concomitant]
     Indication: PRODUCT USED FOR UNKNOWN INDICATION
  3. HERBAL PREPARATION [Concomitant]
     Indication: PRODUCT USED FOR UNKNOWN INDICATION

REACTIONS (3)
  - Gaze palsy [Unknown]
  - Epilepsy [Unknown]
  - Foaming at mouth [Unknown]
